FAERS Safety Report 11046857 (Version 2)
Quarter: 2015Q2

REPORT INFORMATION
  Report Type: Report from Study
  Country: CA (occurrence: CA)
  Receive Date: 20150420
  Receipt Date: 20150421
  Transmission Date: 20150821
  Serious: Yes (Hospitalization)
  Sender: FDA-Public Use
  Company Number: CA-JNJFOC-20150412767

PATIENT
  Age: 50 Year
  Sex: Female
  Weight: 95 kg

DRUGS (1)
  1. REMICADE [Suspect]
     Active Substance: INFLIXIMAB
     Indication: PSORIASIS
     Dosage: 6X100MG VIALS
     Route: 042
     Dates: start: 20140413, end: 20150225

REACTIONS (2)
  - Mycosis fungoides [Unknown]
  - Skin infection [Unknown]

NARRATIVE: CASE EVENT DATE: 20150318
